FAERS Safety Report 9282323 (Version 1)
Quarter: 2013Q2

REPORT INFORMATION
  Report Type: Spontaneous
  Country: US (occurrence: None)
  Receive Date: 20130509
  Receipt Date: 20130509
  Transmission Date: 20140414
  Serious: No
  Sender: FDA-Public Use
  Company Number: None

PATIENT
  Age: 53 Year
  Sex: Female
  Weight: 76.2 kg

DRUGS (1)
  1. AZATHIOPRINE [Suspect]
     Indication: SYSTEMIC LUPUS ERYTHEMATOSUS
     Route: 048
     Dates: start: 201302, end: 201303

REACTIONS (5)
  - Systemic lupus erythematosus [None]
  - Pyrexia [None]
  - Blood urine [None]
  - Product quality issue [None]
  - Laboratory test abnormal [None]
